FAERS Safety Report 6806794-X (Version None)
Quarter: 2010Q2

REPORT INFORMATION
  Report Type: 
  Country: None (occurrence: None)
  Receive Date: 20100629
  Receipt Date: 20080424
  Transmission Date: 20101027
  Serious: No
  Sender: FDA-Public Use
  Company Number: US-PFIZER INC-2008037274

PATIENT
  Sex: Male
  Weight: 81 kg

DRUGS (9)
  1. TIKOSYN [Suspect]
     Indication: ATRIAL FIBRILLATION
     Dates: start: 20080414
  2. COUMADIN [Concomitant]
  3. CARTIA XT [Concomitant]
  4. AMBIEN [Concomitant]
  5. VIAGRA [Concomitant]
  6. MULTI-VITAMINS [Concomitant]
  7. FISH OIL [Concomitant]
  8. ZINC [Concomitant]
  9. CALCIUM CARBONATE [Concomitant]

REACTIONS (1)
  - TACHYCARDIA [None]
